FAERS Safety Report 8373225-0 (Version None)
Quarter: 2012Q2

REPORT INFORMATION
  Report Type: 
  Country: None (occurrence: None)
  Receive Date: 20120521
  Receipt Date: 20120515
  Transmission Date: 20120825
  Serious: Yes (Hospitalization, Other)
  Sender: FDA-Public Use
  Company Number: US-BAYER-2012-031646

PATIENT
  Age: 28 Year
  Sex: Female
  Weight: 61.224 kg

DRUGS (3)
  1. MOTRIN [Concomitant]
  2. YASMIN [Suspect]
     Indication: CONTRACEPTION
     Dosage: UNK
     Dates: start: 20060301, end: 20060601
  3. IBUPROFEN (ADVIL) [Concomitant]

REACTIONS (4)
  - PAIN [None]
  - CORONARY ARTERY THROMBOSIS [None]
  - MYOCARDIAL INFARCTION [None]
  - THROMBOSIS [None]
